FAERS Safety Report 8320874-1 (Version None)
Quarter: 2012Q2

REPORT INFORMATION
  Report Type: 
  Country: None (occurrence: None)
  Receive Date: 20120430
  Receipt Date: 20120423
  Transmission Date: 20120825
  Serious: Yes (Hospitalization, Other)
  Sender: FDA-Public Use
  Company Number: PHEH2012US003872

PATIENT
  Sex: Female

DRUGS (13)
  1. CAYSTON [Concomitant]
  2. NASONEX [Concomitant]
  3. ALBUTEROL [Concomitant]
  4. PULMOZYME [Concomitant]
  5. MIRALAX [Concomitant]
  6. TOBI [Suspect]
     Indication: CYSTIC FIBROSIS
     Dosage: 300 MG, BID
  7. SYMBICORT [Concomitant]
  8. AZITHROMYCIN [Concomitant]
  9. TOBI [Suspect]
     Indication: PSEUDOMONAS INFECTION
  10. VITAMIN A W/VITAMIN D/VITAMIN E/VITAMIN K/ [Concomitant]
  11. TOBI [Suspect]
  12. CREON [Concomitant]
  13. HYPERSAL [Concomitant]

REACTIONS (5)
  - BURKHOLDERIA TEST POSITIVE [None]
  - PSEUDOMONAS INFECTION [None]
  - STAPHYLOCOCCAL INFECTION [None]
  - INFECTIVE PULMONARY EXACERBATION OF CYSTIC FIBROSIS [None]
  - SINUS DISORDER [None]
